FAERS Safety Report 9045352 (Version 4)
Quarter: 2013Q1

REPORT INFORMATION
  Report Type: Spontaneous
  Country: IT (occurrence: IT)
  Receive Date: 20130131
  Receipt Date: 20130322
  Transmission Date: 20140127
  Serious: Yes (Hospitalization)
  Sender: FDA-Public Use
  Company Number: IT-GILEAD-2013-0068646

PATIENT
  Age: 25 None
  Sex: Male

DRUGS (5)
  1. VIREAD [Suspect]
     Indication: INTENTIONAL SELF-INJURY
     Dosage: 245 MG, TOTAL
     Route: 048
     Dates: start: 20130104, end: 20130104
  2. NORVIR [Suspect]
     Indication: INTENTIONAL SELF-INJURY
     Dosage: 500 MG, TOTAL
     Route: 048
     Dates: start: 20130104, end: 20130104
  3. ISENTRESS [Suspect]
     Indication: INTENTIONAL SELF-INJURY
     Dosage: 400 MG, TOTAL
     Route: 048
     Dates: start: 20130104, end: 20130104
  4. VIRAMUNE [Suspect]
     Indication: INTENTIONAL SELF-INJURY
     Dosage: 400 MG, TOTAL
     Route: 048
     Dates: start: 20130104, end: 20130104
  5. ALCOHOL [Concomitant]
     Indication: INTENTIONAL SELF-INJURY
     Dosage: UNK
     Dates: start: 20130104, end: 20130104

REACTIONS (3)
  - Intentional self-injury [Recovered/Resolved]
  - Drug abuse [Recovered/Resolved]
  - Sopor [Recovered/Resolved]
